FAERS Safety Report 5670222-0 (Version None)
Quarter: 2008Q1

REPORT INFORMATION
  Report Type: 
  Country: None (occurrence: None)
  Receive Date: 20080314
  Receipt Date: 20080314
  Transmission Date: 20080703
  Serious: No
  Sender: FDA-Public Use
  Company Number: None

PATIENT
  Sex: Female
  Weight: 61.2356 kg

DRUGS (1)
  1. CHANTIX [Suspect]
     Indication: SMOKING CESSATION THERAPY
     Dosage: 0.5MG QD FOR 3 DAYS THEN 0.5 MG QD FOR 4 DAYS
     Dates: start: 20071127, end: 20071204

REACTIONS (6)
  - ANGER [None]
  - ANXIETY [None]
  - FEELING ABNORMAL [None]
  - INSOMNIA [None]
  - MOOD ALTERED [None]
  - PARAESTHESIA [None]
